FAERS Safety Report 9251774 (Version 2)
Quarter: 2013Q3

REPORT INFORMATION
  Report Type: Spontaneous
  Country: US (occurrence: US)
  Receive Date: 20130424
  Receipt Date: 20130809
  Transmission Date: 20140515
  Serious: Yes (Hospitalization, Other)
  Sender: FDA-Public Use
  Company Number: US-ASTRAZENECA-2013SE27211

PATIENT
  Age: 744 Month
  Sex: Male
  Weight: 166.9 kg

DRUGS (29)
  1. NEXIUM [Suspect]
     Indication: DYSPEPSIA
     Dosage: ONCE A DAY
     Route: 048
  2. NEXIUM [Suspect]
     Indication: OESOPHAGEAL LESION EXCISION
     Dosage: ONCE A DAY
     Route: 048
  3. NEXIUM [Suspect]
     Indication: DYSPEPSIA
     Route: 048
     Dates: start: 20040610
  4. NEXIUM [Suspect]
     Indication: OESOPHAGEAL LESION EXCISION
     Route: 048
     Dates: start: 20040610
  5. PRILOSEC [Suspect]
     Route: 048
  6. PRILOSEC [Suspect]
     Route: 048
     Dates: start: 20110701
  7. PRILOSEC OTC [Suspect]
     Route: 048
  8. PRILOSEC OTC [Suspect]
     Route: 048
     Dates: start: 20080314
  9. PREVACID [Concomitant]
  10. ZANTAC [Concomitant]
  11. TAGAMET [Concomitant]
  12. PEPCID [Concomitant]
  13. TUMS [Concomitant]
  14. ALKA SELTZER [Concomitant]
  15. MILK OF MAGNESIA [Concomitant]
  16. PEPTO BISMOL [Concomitant]
  17. ROLAIDS [Concomitant]
  18. MYLANTA [Concomitant]
  19. LOVAZA [Concomitant]
  20. NIASPAN [Concomitant]
  21. TOPROL [Concomitant]
  22. PLAVIX [Concomitant]
  23. CRESTOR [Concomitant]
  24. DIOVAN [Concomitant]
  25. HYDROCHLOROTHIAZIDE [Concomitant]
  26. METHADONE [Concomitant]
  27. CELEBREX [Concomitant]
  28. OXYCODONE [Concomitant]
     Dates: start: 20111005
  29. ASPIRIN [Concomitant]

REACTIONS (13)
  - Osteoarthritis [Unknown]
  - Neoplasm malignant [Unknown]
  - Polyneuropathy [Unknown]
  - Malignant melanoma [Unknown]
  - Cardiac disorder [Unknown]
  - Coronary artery disease [Unknown]
  - Cardiac failure congestive [Unknown]
  - Osteoporosis [Unknown]
  - Bone disorder [Unknown]
  - Multiple fractures [Unknown]
  - Androgen deficiency [Unknown]
  - Spinal column stenosis [Unknown]
  - Arthritis [Unknown]
